FAERS Safety Report 17324693 (Version 2)
Quarter: 2020Q1

REPORT INFORMATION
  Report Type: Spontaneous
  Country: US (occurrence: US)
  Receive Date: 20200127
  Receipt Date: 20200228
  Transmission Date: 20200409
  Serious: Yes (Hospitalization, Other)
  Sender: FDA-Public Use
  Company Number: US-GLAXOSMITHKLINE-US2020GSK010935

PATIENT
  Sex: Male

DRUGS (4)
  1. LANSOPRAZOLE. [Suspect]
     Active Substance: LANSOPRAZOLE
     Indication: GASTROOESOPHAGEAL REFLUX DISEASE
     Dosage: 15 MG, QD
     Route: 065
     Dates: start: 201210, end: 201211
  2. PANTOPRAZOLE [Suspect]
     Active Substance: PANTOPRAZOLE
     Dosage: 40 MG
     Route: 065
  3. PREVACID [Suspect]
     Active Substance: LANSOPRAZOLE
     Indication: PRODUCT USED FOR UNKNOWN INDICATION
     Dosage: 15 MG, BID
     Route: 048
  4. PANTOPRAZOLE [Suspect]
     Active Substance: PANTOPRAZOLE
     Indication: GASTROOESOPHAGEAL REFLUX DISEASE
     Dosage: 40 MG, QD
     Route: 048
     Dates: start: 201210, end: 201211

REACTIONS (13)
  - Anuria [Unknown]
  - Hydronephrosis [Unknown]
  - Renal failure [Not Recovered/Not Resolved]
  - Dysuria [Unknown]
  - Ureterolithiasis [Unknown]
  - Pyelocaliectasis [Unknown]
  - Nephrolithiasis [Unknown]
  - Haematuria [Unknown]
  - Chronic kidney disease [Not Recovered/Not Resolved]
  - Proteinuria [Unknown]
  - Acute kidney injury [Not Recovered/Not Resolved]
  - Urinary retention [Unknown]
  - Renal disorder [Unknown]
